FAERS Safety Report 6781006-4 (Version None)
Quarter: 2010Q2

REPORT INFORMATION
  Report Type: 
  Country: None (occurrence: None)
  Receive Date: 20100615
  Receipt Date: 20100602
  Transmission Date: 20101027
  Serious: Yes (Other)
  Sender: FDA-Public Use
  Company Number: 20097870

PATIENT
  Age: 13 Year
  Sex: Male
  Weight: 29.4 kg

DRUGS (10)
  1. BACLOFEN [Suspect]
     Indication: MUSCLE SPASTICITY
     Dosage: 86 MCG, DAILY, INTRATHECAL
     Route: 037
  2. ONON DS [Concomitant]
  3. TIZANIDINE HCL [Concomitant]
  4. GABALON [Concomitant]
  5. EXCEGRAN [Concomitant]
  6. MYSTAN [Concomitant]
  7. RIVOTRIL [Concomitant]
  8. RISPERDAL [Concomitant]
  9. MUCOSAL DS [Concomitant]
  10. DEPAKENE SY [Concomitant]

REACTIONS (3)
  - COUGH [None]
  - INFREQUENT BOWEL MOVEMENTS [None]
  - SPUTUM RETENTION [None]
